FAERS Safety Report 9522215 (Version 2)
Quarter: 2013Q3

REPORT INFORMATION
  Report Type: Spontaneous
  Country: US (occurrence: None)
  Receive Date: 20130829
  Receipt Date: 20130917
  Transmission Date: 20140515
  Serious: Yes (Hospitalization)
  Sender: FDA-Public Use
  Company Number: 2013PROUSA03091

PATIENT
  Age: 68 Year
  Sex: Male
  Weight: 77.1 kg

DRUGS (2)
  1. PROVENGE (SIPULEUCEL-T) SUSPENSION, 250ML [Suspect]
     Indication: PROSTATE CANCER METASTATIC
     Route: 042
     Dates: start: 20130805, end: 20130805
  2. LUPRON (LEUPRORELIN ACETATE) [Concomitant]

REACTIONS (1)
  - Neoplasm malignant [None]
